FAERS Safety Report 14095677 (Version 6)
Quarter: 2019Q1

REPORT INFORMATION
  Report Type: Spontaneous
  Country: AT (occurrence: AT)
  Receive Date: 20171016
  Receipt Date: 20190314
  Transmission Date: 20190417
  Serious: Yes (Death, Life-Threatening, Hospitalization)
  Sender: FDA-Public Use
  Company Number: AT-CELGENEUS-AUT-20171001865

PATIENT
  Age: 70 Year
  Sex: Male
  Weight: 95.2 kg

DRUGS (19)
  1. ZENTROOLIMEL [Concomitant]
     Indication: DIARRHOEA
     Dosage: 100 MILLILITER
     Route: 041
     Dates: start: 20170928
  2. OPTINEM [Concomitant]
     Active Substance: MEROPENEM
     Indication: C-REACTIVE PROTEIN INCREASED
     Dosage: 6 GRAM
     Route: 041
     Dates: start: 20170930, end: 20171010
  3. ALLOPURINOL. [Concomitant]
     Active Substance: ALLOPURINOL
     Indication: PROPHYLAXIS
     Route: 048
     Dates: start: 20170901
  4. LAEVOLAC [Concomitant]
     Active Substance: LACTULOSE
     Indication: DIARRHOEA
     Route: 048
     Dates: start: 20170927, end: 20170929
  5. AZACITIDINE. [Suspect]
     Active Substance: AZACITIDINE
     Indication: ACUTE MYELOID LEUKAEMIA
     Route: 041
     Dates: start: 20170918, end: 20170924
  6. ACEMIN [Concomitant]
     Active Substance: LISINOPRIL
     Indication: CARDIOMYOPATHY
     Dosage: 2.5 MILLIGRAM
     Route: 048
     Dates: start: 20170928, end: 20171010
  7. VALACICLOVIR [Concomitant]
     Active Substance: VALACYCLOVIR HYDROCHLORIDE
     Indication: INFECTION PROPHYLAXIS
     Route: 048
     Dates: start: 20170901, end: 20171010
  8. PANTOLOC [Concomitant]
     Active Substance: PANTOPRAZOLE SODIUM
     Indication: PROPHYLAXIS
     Dosage: 40 MILLIGRAM
     Route: 048
     Dates: start: 20170901, end: 20171010
  9. ZARZIO [Concomitant]
     Active Substance: FILGRASTIM
     Indication: NEUTROPENIA
  10. VENETOCLAX. [Suspect]
     Active Substance: VENETOCLAX
     Indication: ACUTE MYELOID LEUKAEMIA
     Route: 065
     Dates: start: 20170918
  11. DIOVAN [Concomitant]
     Active Substance: VALSARTAN
     Indication: ATRIAL FIBRILLATION
     Dosage: 40 MILLIGRAM
     Route: 048
     Dates: start: 20170904, end: 20170906
  12. ZYVOXID [Concomitant]
     Active Substance: LINEZOLID
     Indication: C-REACTIVE PROTEIN INCREASED
     Dosage: 1800 MILLIGRAM
     Route: 041
     Dates: start: 20171001, end: 20171010
  13. LIDAPRIM [Concomitant]
     Indication: INFECTION PROPHYLAXIS
     Route: 048
     Dates: start: 20170901, end: 20171010
  14. CIPROXIN [Concomitant]
     Active Substance: CIPROFLOXACIN
     Indication: INFECTION PROPHYLAXIS
     Dosage: 1000 MILLIGRAM
     Route: 048
     Dates: start: 20170928, end: 20171010
  15. LACTATED RINGERS SOLUTION [Concomitant]
     Active Substance: CALCIUM CHLORIDE\POTASSIUM CHLORIDE\SODIUM CHLORIDE\SODIUM LACTATE
     Indication: PROPHYLAXIS
     Route: 041
     Dates: start: 20170918, end: 20170922
  16. CONCOR [Concomitant]
     Active Substance: BISOPROLOL FUMARATE
     Indication: ATRIAL FIBRILLATION
     Dosage: 2.5 MILLIGRAM
     Route: 048
     Dates: start: 20170904, end: 20171010
  17. LACTATED RINGERS SOLUTION [Concomitant]
     Active Substance: CALCIUM CHLORIDE\POTASSIUM CHLORIDE\SODIUM CHLORIDE\SODIUM LACTATE
     Indication: FLUID REPLACEMENT
  18. VOLTAREN [Concomitant]
     Active Substance: DICLOFENAC SODIUM
     Indication: SOFT TISSUE SWELLING
     Route: 061
     Dates: start: 20170907, end: 20171010
  19. ZARZIO [Concomitant]
     Active Substance: FILGRASTIM
     Indication: LEUKOPENIA
     Dosage: 48000 IU (INTERNATIONAL UNIT)
     Route: 058
     Dates: start: 20170929, end: 20171008

REACTIONS (2)
  - Cardiac failure [Recovered/Resolved]
  - Pneumonia [Fatal]

NARRATIVE: CASE EVENT DATE: 20171001
